FAERS Safety Report 8928914 (Version 1)
Quarter: 2012Q4

REPORT INFORMATION
  Report Type: 
  Country: US (occurrence: US)
  Receive Date: 20121128
  Receipt Date: 20121128
  Transmission Date: 20130627
  Serious: No
  Sender: FDA-Public Use
  Company Number: US-TEVA-372429USA

PATIENT
  Sex: Female

DRUGS (3)
  1. PLAN B ONE-STEP [Suspect]
     Indication: POST COITAL CONTRACEPTION
     Dosage: 1.5 Milligram Daily;
     Route: 048
     Dates: start: 20121121, end: 20121121
  2. AMOXICILLIN [Concomitant]
     Indication: WISDOM TEETH REMOVAL
  3. IBUPROFEN [Concomitant]
     Indication: WISDOM TEETH REMOVAL

REACTIONS (1)
  - Abdominal pain [Not Recovered/Not Resolved]
